FAERS Safety Report 13757699 (Version 2)
Quarter: 2017Q3

REPORT INFORMATION
  Report Type: Report from Study
  Country: CA (occurrence: CA)
  Receive Date: 20170717
  Receipt Date: 20170920
  Transmission Date: 20171127
  Serious: Yes (Other)
  Sender: FDA-Public Use
  Company Number: CA-ROCHE-1962748

PATIENT
  Age: 57 Year
  Sex: Female

DRUGS (6)
  1. FOLIC ACID. [Concomitant]
     Active Substance: FOLIC ACID
  2. RITUXAN [Suspect]
     Active Substance: RITUXIMAB
     Indication: RHEUMATOID ARTHRITIS
     Route: 042
     Dates: start: 20170126, end: 20170706
  3. ALEVE [Concomitant]
     Active Substance: NAPROXEN SODIUM
  4. METHOTREXATE. [Concomitant]
     Active Substance: METHOTREXATE
  5. INDOCID [Concomitant]
     Active Substance: INDOMETHACIN
  6. PARIET [Concomitant]
     Active Substance: RABEPRAZOLE SODIUM

REACTIONS (7)
  - Swelling face [Recovering/Resolving]
  - Erythema [Recovering/Resolving]
  - Nausea [Recovering/Resolving]
  - Throat tightness [Unknown]
  - Oropharyngeal pain [Unknown]
  - Pain [Recovering/Resolving]
  - Headache [Unknown]

NARRATIVE: CASE EVENT DATE: 201707
